FAERS Safety Report 7979824-X (Version None)
Quarter: 2011Q4

REPORT INFORMATION
  Report Type: 
  Country: None (occurrence: None)
  Receive Date: 20111214
  Receipt Date: 20111207
  Transmission Date: 20120403
  Serious: Yes (Life-Threatening, Hospitalization, Disabling, Other)
  Sender: FDA-Public Use
  Company Number: FR-ELI_LILLY_AND_COMPANY-FR201110000545

PATIENT
  Sex: Male
  Weight: 74 kg

DRUGS (11)
  1. FOLIC ACID [Concomitant]
     Indication: VITAMIN SUPPLEMENTATION
     Dosage: 0.4 MG, QD
     Route: 048
     Dates: start: 20110801
  2. NEXIUM [Concomitant]
  3. ALIMTA [Suspect]
     Indication: NON-SMALL CELL LUNG CANCER
     Dosage: 500 MG/M2 (900 MG PER INFUSION), EVERY 3 WEEKS
     Route: 042
     Dates: start: 20110901, end: 20110901
  4. PREDNISONE TAB [Concomitant]
     Indication: PROPHYLAXIS
     Dosage: UNK
     Dates: start: 20110831, end: 20110902
  5. NEURONTIN [Concomitant]
  6. VITAMIN B-12 [Concomitant]
     Indication: VITAMIN SUPPLEMENTATION
     Dosage: UNK
     Dates: start: 20110801
  7. MORPHINE SULFATE [Concomitant]
  8. ALFUZOSIN HCL [Concomitant]
  9. CARBOPLATIN [Concomitant]
     Indication: NON-SMALL CELL LUNG CANCER
     Dosage: UNK, EVERY 3 WEEKS
     Route: 042
     Dates: start: 20110901, end: 20110901
  10. ZITHROMAX [Concomitant]
  11. NICARDIPINE HCL [Concomitant]

REACTIONS (6)
  - NEUTROPENIA [None]
  - THROMBOCYTOPENIA [None]
  - ANAEMIA [None]
  - PETECHIAE [None]
  - GENERAL PHYSICAL HEALTH DETERIORATION [None]
  - CHRONIC LYMPHOCYTIC LEUKAEMIA [None]
